FAERS Safety Report 7514698-2 (Version None)
Quarter: 2011Q2

REPORT INFORMATION
  Report Type: 
  Country: None (occurrence: None)
  Receive Date: 20110526
  Receipt Date: 20110526
  Transmission Date: 20111010
  Serious: Yes (Life-Threatening, Hospitalization, Disabling)
  Sender: FDA-Public Use
  Company Number: None

PATIENT
  Sex: Female

DRUGS (2)
  1. PAROXETINE HCL [Suspect]
     Indication: ANXIETY
     Dosage: PAXIL 20MG THREE TIMES  DAILY BY MOUTH
     Route: 048
     Dates: start: 20100118, end: 20100419
  2. PAROXETINE HCL [Suspect]
     Indication: DEPRESSION
     Dosage: PAXIL 20MG THREE TIMES  DAILY BY MOUTH
     Route: 048
     Dates: start: 20100118, end: 20100419

REACTIONS (3)
  - SYNCOPE [None]
  - NERVOUS SYSTEM DISORDER [None]
  - ABNORMAL BEHAVIOUR [None]
